FAERS Safety Report 13257712 (Version 2)
Quarter: 2017Q1

REPORT INFORMATION
  Report Type: Spontaneous
  Country: US (occurrence: US)
  Receive Date: 20170221
  Receipt Date: 20170306
  Transmission Date: 20170428
  Serious: No
  Sender: FDA-Public Use
  Company Number: US-BEH-2017078204

PATIENT
  Age: 11 Year
  Sex: Male

DRUGS (11)
  1. HIZENTRA [Suspect]
     Active Substance: HUMAN IMMUNOGLOBULIN G
     Indication: ANAPHYLACTIC SHOCK
     Dosage: 14 G, 70 ML, QW
     Route: 058
     Dates: start: 20170119
  2. ZOFRAN [Concomitant]
     Active Substance: ONDANSETRON HYDROCHLORIDE
     Dosage: 4 MG, UNK
     Route: 065
  3. OMEGA-3                            /01866101/ [Concomitant]
     Active Substance: OMEGA-3 FATTY ACIDS
     Dosage: 1000 MG, UNK
     Route: 065
  4. VITAMIN D3 [Concomitant]
     Active Substance: CHOLECALCIFEROL
     Dosage: 1000 IU, UNK
     Route: 065
  5. TUMS                               /00193601/ [Concomitant]
     Active Substance: CALCIUM CARBONATE\MAGNESIUM CARBONATE\MAGNESIUM TRISILICATE
     Dosage: 500 MG, UNK
     Route: 065
  6. CYPROHEPTADIN [Concomitant]
     Dosage: 4 MG, UNK
     Route: 065
  7. RIZATRIPTAN. [Concomitant]
     Active Substance: RIZATRIPTAN
     Dosage: 10 MG, UNK
     Route: 065
  8. HYOSCYAMINE. [Concomitant]
     Active Substance: HYOSCYAMINE
     Dosage: 0.125/ML
     Route: 065
  9. ALLEGRA ALLERGY [Concomitant]
     Active Substance: FEXOFENADINE HYDROCHLORIDE
     Dosage: 180 MG, UNK
     Route: 065
  10. ZANTAC [Concomitant]
     Active Substance: RANITIDINE HYDROCHLORIDE
     Dosage: 300 MG, UNK
     Route: 065
  11. BIAXIN [Concomitant]
     Active Substance: CLARITHROMYCIN
     Dosage: 250 MG, UNK
     Route: 065

REACTIONS (5)
  - Neck pain [Recovered/Resolved]
  - Mydriasis [Recovered/Resolved]
  - Headache [Recovered/Resolved]
  - Attention deficit/hyperactivity disorder [Recovered/Resolved]
  - Fatigue [Recovered/Resolved]

NARRATIVE: CASE EVENT DATE: 20170203
